FAERS Safety Report 11090989 (Version 1)
Quarter: 2015Q2

REPORT INFORMATION
  Report Type: Spontaneous
  Country: US (occurrence: None)
  Receive Date: 20150504
  Receipt Date: 20150504
  Transmission Date: 20150821
  Serious: No
  Sender: FDA-Public Use
  Company Number: None

PATIENT
  Age: 57 Year
  Sex: Female

DRUGS (3)
  1. HUMIRA [Suspect]
     Active Substance: ADALIMUMAB
     Indication: HYPOAESTHESIA
     Dosage: 1 PEN (40MG), EVERY 2 WEEKS, SUBCUTANEOUS
     Route: 058
     Dates: start: 20140911, end: 20150501
  2. HUMIRA [Suspect]
     Active Substance: ADALIMUMAB
     Indication: DECREASED APPETITE
     Dosage: 1 PEN (40MG), EVERY 2 WEEKS, SUBCUTANEOUS
     Route: 058
     Dates: start: 20140911, end: 20150501
  3. HUMIRA [Suspect]
     Active Substance: ADALIMUMAB
     Indication: ASTHENIA
     Dosage: 1 PEN (40MG), EVERY 2 WEEKS, SUBCUTANEOUS
     Route: 058
     Dates: start: 20140911, end: 20150501

REACTIONS (3)
  - Hypoaesthesia [None]
  - Asthenia [None]
  - Decreased appetite [None]

NARRATIVE: CASE EVENT DATE: 20150501
